FAERS Safety Report 9498863 (Version 1)
Quarter: 2013Q3

REPORT INFORMATION
  Report Type: Spontaneous
  Country: CN (occurrence: CN)
  Receive Date: 20130904
  Receipt Date: 20130904
  Transmission Date: 20140515
  Serious: Yes (Other)
  Sender: FDA-Public Use
  Company Number: PHHY2012CN122556

PATIENT
  Age: 67 Year
  Sex: Male
  Weight: 70 kg

DRUGS (1)
  1. DIOVAN [Suspect]
     Indication: HYPERTENSION
     Dosage: 80 MG, ONCE DAILY
     Route: 048
     Dates: start: 20091117, end: 20091211

REACTIONS (2)
  - Anaphylactoid reaction [Recovered/Resolved]
  - Cough [Recovered/Resolved]
